FAERS Safety Report 6551841-6 (Version None)
Quarter: 2010Q1

REPORT INFORMATION
  Report Type: 
  Country: None (occurrence: None)
  Receive Date: 20100126
  Receipt Date: 20100115
  Transmission Date: 20100710
  Serious: Yes (Death, Hospitalization)
  Sender: FDA-Public Use
  Company Number: US-JNJFOC-20100106861

PATIENT
  Age: 53 Year
  Sex: Male

DRUGS (7)
  1. ACETAMINOPHEN [Suspect]
     Route: 048
  2. ACETAMINOPHEN [Suspect]
     Indication: SUICIDE ATTEMPT
     Route: 048
  3. MORPHINE [Suspect]
     Indication: SUICIDE ATTEMPT
     Route: 048
  4. PHENOBARBITAL SRT [Suspect]
     Indication: SUICIDE ATTEMPT
     Route: 048
  5. HYDROMORPHONE [Suspect]
     Indication: SUICIDE ATTEMPT
     Route: 048
  6. CARISOPRODOL [Suspect]
     Indication: SUICIDE ATTEMPT
     Route: 048
  7. DIPHENOXYLATE HCL + ATROPINE SULFATE [Suspect]
     Indication: SUICIDE ATTEMPT
     Route: 048

REACTIONS (1)
  - DRUG TOXICITY [None]
